FAERS Safety Report 6423753-X (Version None)
Quarter: 2009Q4

REPORT INFORMATION
  Report Type: 
  Country: None (occurrence: None)
  Receive Date: 20091028
  Receipt Date: 20091014
  Transmission Date: 20100525
  Serious: Yes (Death)
  Sender: FDA-Public Use
  Company Number: 2009AL006674

PATIENT
  Age: 78 Year
  Sex: Female

DRUGS (4)
  1. CARBAMAZEPINE [Suspect]
  2. AMLODIPINE BESYLATE [Suspect]
  3. LEVETIRACETAM [Concomitant]
  4. AMOXICILLIN [Concomitant]

REACTIONS (1)
  - COMPLETED SUICIDE [None]
